FAERS Safety Report 16765411 (Version 1)
Quarter: 2019Q3

REPORT INFORMATION
  Report Type: Spontaneous
  Country: US (occurrence: US)
  Receive Date: 20190712
  Receipt Date: 20190712
  Transmission Date: 20191005
  Serious: No
  Sender: FDA-Public Use
  Company Number: None

PATIENT
  Age: 61 Year
  Sex: Female

DRUGS (1)
  1. SPRYCEL [Suspect]
     Active Substance: DASATINIB
     Route: 048
     Dates: start: 20160712

REACTIONS (4)
  - Urticaria [None]
  - Photosensitivity reaction [None]
  - Skin irritation [None]
  - Pruritus [None]

NARRATIVE: CASE EVENT DATE: 20190707
